FAERS Safety Report 25702924 (Version 2)
Quarter: 2025Q3

REPORT INFORMATION
  Report Type: Spontaneous
  Country: EU (occurrence: EU)
  Receive Date: 20250819
  Receipt Date: 20250915
  Transmission Date: 20251021
  Serious: Yes (Other)
  Sender: BIOGEN
  Company Number: EU-BIOGEN-2025BI01320744

PATIENT
  Age: 21 Year
  Sex: Female

DRUGS (1)
  1. SKYCLARYS [Suspect]
     Active Substance: OMAVELOXOLONE
     Indication: Friedreich^s ataxia
     Route: 050
     Dates: start: 202412

REACTIONS (4)
  - Anxiety disorder [Unknown]
  - Friedreich^s ataxia [Unknown]
  - Drug interaction [Unknown]
  - Psychomotor retardation [Unknown]
